FAERS Safety Report 5595708-9 (Version None)
Quarter: 2008Q1

REPORT INFORMATION
  Report Type: 
  Country: None (occurrence: None)
  Receive Date: 20080118
  Receipt Date: 20080111
  Transmission Date: 20080703
  Serious: Yes (Hospitalization, Congenital Anomaly, Other)
  Sender: FDA-Public Use
  Company Number: GB-AVENTIS-200721102GDDC

PATIENT
  Sex: Female
  Weight: 1.31 kg

DRUGS (1)
  1. LANTUS [Suspect]
     Route: 064
     Dates: start: 20031217

REACTIONS (4)
  - CONDUCTIVE DEAFNESS [None]
  - DRUG EXPOSURE DURING PREGNANCY [None]
  - JAUNDICE NEONATAL [None]
  - RESPIRATORY DISTRESS [None]
